FAERS Safety Report 8382413-9 (Version None)
Quarter: 2012Q2

REPORT INFORMATION
  Report Type: 
  Country: None (occurrence: None)
  Receive Date: 20120524
  Receipt Date: 20120510
  Transmission Date: 20120825
  Serious: Yes (Other)
  Sender: FDA-Public Use
  Company Number: CHNY2012CH000579

PATIENT
  Age: 37 Year
  Sex: Female

DRUGS (8)
  1. RESYL PLUS [Suspect]
     Indication: BRONCHITIS
     Dosage: 3 DF, QD
     Route: 065
     Dates: start: 20111217, end: 20111219
  2. TOLPERISONE HYDROCHLORIDE [Suspect]
     Indication: BRONCHITIS
     Dosage: 5 DF, QD
     Route: 065
     Dates: start: 20111217, end: 20111221
  3. VOLTAREN [Suspect]
     Indication: BRONCHITIS
     Dosage: 1 DF, QD
     Route: 065
     Dates: start: 20111217
  4. SYMBICORT [Suspect]
     Indication: BRONCHITIS
     Dosage: 2 DF, QD
     Route: 065
     Dates: start: 20111217, end: 20111218
  5. METAMIZOLE SODIUM [Suspect]
     Indication: BRONCHITIS
     Dosage: 2 DF, QD
     Route: 065
     Dates: start: 20111217, end: 20111220
  6. SOLMUCOL [Suspect]
     Indication: BRONCHITIS
     Dosage: 2 DF, QD
     Route: 065
     Dates: start: 20111217, end: 20111219
  7. IBUPROFEN TABLETS [Suspect]
     Indication: BRONCHITIS
     Dosage: 4 DF, QD
     Route: 065
     Dates: start: 20111217
  8. ACETAMINOPHEN [Suspect]
     Indication: BRONCHITIS
     Dosage: 4 DF, QD
     Route: 065
     Dates: start: 20111217

REACTIONS (2)
  - ABORTION SPONTANEOUS [None]
  - MATERNAL EXPOSURE DURING PREGNANCY [None]
